FAERS Safety Report 5065314-3 (Version None)
Quarter: 2006Q3

REPORT INFORMATION
  Report Type: 
  Country: None (occurrence: None)
  Receive Date: 20060731
  Receipt Date: 20060720
  Transmission Date: 20061208
  Serious: Yes (Other)
  Sender: FDA-Public Use
  Company Number: US-AMGEN-US187245

PATIENT
  Sex: Female

DRUGS (2)
  1. ENBREL [Suspect]
     Indication: RHEUMATOID ARTHRITIS
     Route: 058
     Dates: start: 20060330, end: 20060415
  2. METHOTREXATE [Concomitant]
     Dates: start: 19910101

REACTIONS (6)
  - FALL [None]
  - LUNG NEOPLASM [None]
  - RASH [None]
  - RIB FRACTURE [None]
  - SPINAL COLUMN STENOSIS [None]
  - SPLEEN DISORDER [None]
